FAERS Safety Report 11783779 (Version 1)
Quarter: 2015Q4

REPORT INFORMATION
  Report Type: Spontaneous
  Country: US (occurrence: US)
  Receive Date: 20151127
  Receipt Date: 20151127
  Transmission Date: 20160305
  Serious: Yes (Hospitalization, Other)
  Sender: FDA-Public Use
  Company Number: US-BRISTOL-MYERS SQUIBB COMPANY-BMS-2015-080399

PATIENT
  Age: 57 Year
  Sex: Female

DRUGS (3)
  1. JAKAFI [Suspect]
     Active Substance: RUXOLITINIB
     Indication: MYELOFIBROSIS
     Dosage: UNK
     Route: 048
     Dates: start: 201204
  2. HYDREA [Suspect]
     Active Substance: HYDROXYUREA
     Indication: PRODUCT USED FOR UNKNOWN INDICATION
     Route: 065
  3. ACYCLOVIR                          /00587301/ [Concomitant]
     Active Substance: ACYCLOVIR
     Indication: PRODUCT USED FOR UNKNOWN INDICATION
     Dosage: 200 MG, UNK
     Route: 065

REACTIONS (13)
  - Peripheral swelling [Unknown]
  - Splenectomy [Unknown]
  - Cellulitis [Unknown]
  - Blood count abnormal [Unknown]
  - Drug dose omission [Unknown]
  - White blood cell count increased [Unknown]
  - Platelet count increased [Unknown]
  - Thrombosis [Unknown]
  - Neutropenia [Unknown]
  - Pyrexia [Unknown]
  - Haemorrhage [Unknown]
  - Infection [Unknown]
  - Dizziness [Unknown]

NARRATIVE: CASE EVENT DATE: 201412
